FAERS Safety Report 8831426 (Version 2)
Quarter: 2012Q4

REPORT INFORMATION
  Report Type: 
  Country: TR (occurrence: TR)
  Receive Date: 20121009
  Receipt Date: 20121022
  Transmission Date: 20130627
  Serious: Yes (Other)
  Sender: FDA-Public Use
  Company Number: TR-GENZYME-CERZ-1002659

PATIENT
  Age: 26 Year
  Sex: Female

DRUGS (4)
  1. CEREZYME [Suspect]
     Indication: GAUCHER^S DISEASE
     Dosage: 30 U/kg, q2w
     Route: 042
  2. METHYLPREDNISOLONE [Concomitant]
     Indication: PREMEDICATION
     Dosage: 40 mg, UNK
     Route: 042
  3. PHENIRAMINE [Concomitant]
     Indication: PREMEDICATION
     Dosage: 45.5 mg, UNK
     Route: 042
  4. ACETYLSALICYLIC ACID [Concomitant]
     Indication: PREMEDICATION
     Route: 048

REACTIONS (3)
  - Anaphylactic reaction [Recovered/Resolved]
  - Anaemia [Unknown]
  - Thrombocytopenia [Unknown]
